FAERS Safety Report 5766860-7 (Version None)
Quarter: 2008Q2

REPORT INFORMATION
  Report Type: 
  Country: None (occurrence: None)
  Receive Date: 20080612
  Receipt Date: 20080604
  Transmission Date: 20081010
  Serious: Yes (Other)
  Sender: FDA-Public Use
  Company Number: US-BAYER-200812236BCC

PATIENT
  Age: 28 Year
  Sex: Male
  Weight: 75 kg

DRUGS (1)
  1. EXTRA STRENGTH BAYER BACK + BODY PAIN ASPIRIN [Suspect]
     Indication: BACK PAIN
     Dosage: AS USED: 1500 MG  UNIT DOSE: 500 MG
     Route: 048
     Dates: start: 20080604

REACTIONS (5)
  - ABDOMINAL PAIN UPPER [None]
  - FALL [None]
  - LOSS OF CONSCIOUSNESS [None]
  - VISION BLURRED [None]
  - VOMITING [None]
